FAERS Safety Report 7789613-7 (Version None)
Quarter: 2011Q3

REPORT INFORMATION
  Report Type: 
  Country: None (occurrence: None)
  Receive Date: 20110930
  Receipt Date: 20110915
  Transmission Date: 20111222
  Serious: Yes (Other)
  Sender: FDA-Public Use
  Company Number: GB-WATSON-2011-10780

PATIENT
  Sex: Female
  Weight: 85 kg

DRUGS (1)
  1. SIMVASTATIN [Suspect]
     Indication: BLOOD CHOLESTEROL INCREASED
     Dosage: 40 MG, DAILY
     Route: 048
     Dates: start: 20110416, end: 20110516

REACTIONS (1)
  - COUGH [None]
